FAERS Safety Report 6168142-0 (Version None)
Quarter: 2009Q2

REPORT INFORMATION
  Report Type: 
  Country: None (occurrence: None)
  Receive Date: 20090427
  Receipt Date: 20090423
  Transmission Date: 20091009
  Serious: Yes (Hospitalization)
  Sender: FDA-Public Use
  Company Number: AT-ASTRAZENECA-2009PK01141

PATIENT

DRUGS (1)
  1. ATACAND HCT [Suspect]
     Indication: HYPERTENSION
     Route: 048
     Dates: start: 20000901, end: 20080101

REACTIONS (2)
  - ARRHYTHMIA [None]
  - EXTRASYSTOLES [None]
